FAERS Safety Report 26162629 (Version 1)
Quarter: 2025Q4

REPORT INFORMATION
  Report Type: Spontaneous
  Country: US (occurrence: US)
  Receive Date: 20251216
  Receipt Date: 20251216
  Transmission Date: 20260118
  Serious: Yes (Other)
  Sender: MAIA PHARMACEUTICALS
  Company Number: US-MAI-MAI202512-000215

PATIENT
  Age: 62 Year
  Sex: Female

DRUGS (2)
  1. LEVOTHYROXINE SODIUM [Suspect]
     Active Substance: LEVOTHYROXINE SODIUM
     Indication: Hypothyroidism
     Dosage: UNKNOWN
     Route: 042
  2. LEVOTHYROXINE SODIUM [Suspect]
     Active Substance: LEVOTHYROXINE SODIUM
     Dosage: UNKNOWN (REDUCED DOSE)
     Route: 042

REACTIONS (4)
  - Pulmonary oedema [Recovering/Resolving]
  - Organ failure [Recovering/Resolving]
  - Cardiogenic shock [Recovering/Resolving]
  - Drug effective for unapproved indication [Unknown]
